FAERS Safety Report 9458092 (Version 1)
Quarter: 2013Q3

REPORT INFORMATION
  Report Type: Spontaneous
  Country: US (occurrence: None)
  Receive Date: 20130812
  Receipt Date: 20130812
  Transmission Date: 20140515
  Serious: Yes (Hospitalization)
  Sender: FDA-Public Use
  Company Number: None

PATIENT
  Age: 65 Year
  Sex: Female

DRUGS (1)
  1. SUTENT [Suspect]
     Dosage: 50MG DAILY PO
     Route: 048
     Dates: start: 20130522

REACTIONS (2)
  - Peroneal nerve palsy [None]
  - Epistaxis [None]
